FAERS Safety Report 6118790-9 (Version None)
Quarter: 2009Q1

REPORT INFORMATION
  Report Type: 
  Country: None (occurrence: None)
  Receive Date: 20090316
  Receipt Date: 20090303
  Transmission Date: 20090719
  Serious: Yes (Other)
  Sender: FDA-Public Use
  Company Number: DE-RANBAXY-2009RR-22419

PATIENT
  Age: 69 Year
  Sex: Female
  Weight: 65 kg

DRUGS (11)
  1. METFORMIN HCL [Suspect]
     Indication: DIABETES MELLITUS
     Dosage: 1 G, UNK
     Route: 048
     Dates: start: 20090110, end: 20090112
  2. GABAPENTIN [Suspect]
     Indication: NEURALGIA
     Dosage: 1.2 G, UNK
     Route: 048
     Dates: start: 20081201, end: 20090112
  3. CLEXANE [Concomitant]
     Dosage: 0.6 MG, UNK
  4. CLONIDINE [Concomitant]
     Indication: HYPERTENSION
     Dosage: 150 UG, UNK
     Route: 048
     Dates: start: 20081201, end: 20090107
  5. DECORTIN [Concomitant]
     Dosage: 10 MG, UNK
  6. MAGNESIUM SULFATE [Concomitant]
  7. METOCLOPRAMIDE HYDROCHLORIDE [Concomitant]
  8. METRONIDAZOLE [Concomitant]
     Indication: DIARRHOEA
     Dosage: 1200 MG, UNK
     Route: 048
     Dates: start: 20081222, end: 20090107
  9. NEXIUM [Concomitant]
     Dosage: 20 MG, UNK
  10. PARACETAMOL [Concomitant]
     Indication: PAIN
     Dosage: 2 G, UNK
     Route: 048
     Dates: start: 20081222, end: 20090126
  11. ZOPICLONE [Concomitant]

REACTIONS (1)
  - AGRANULOCYTOSIS [None]
